FAERS Safety Report 4543915-6 (Version None)
Quarter: 2005Q1

REPORT INFORMATION
  Report Type: 
  Country: None (occurrence: None)
  Receive Date: 20050103
  Receipt Date: 20040428
  Transmission Date: 20050727
  Serious: Yes (Hospitalization)
  Sender: FDA-Public Use
  Company Number: GXKR2004FR00515

PATIENT
  Age: 77 Year
  Sex: Male
  Weight: 80 kg

DRUGS (7)
  1. LOPERAMIDE [Suspect]
     Indication: DIARRHOEA
     Dosage: 2 MG, BID, ORAL
     Route: 048
     Dates: start: 20040326, end: 20040404
  2. GLYBURIDE [Concomitant]
  3. SPASFON (PHLOROGLUCINOL, TRIMETHYLPHLOROGLUCINOL) [Concomitant]
  4. PARACETAMOL RPG (PARACETAMOL) [Concomitant]
  5. PAROXETINE HCL [Concomitant]
  6. PROSCAR [Concomitant]
  7. TRIMETHYLPHLOROGLUCINOL [Concomitant]

REACTIONS (2)
  - NEPHROTIC SYNDROME [None]
  - RIGHT VENTRICULAR FAILURE [None]
